FAERS Safety Report 19559982 (Version 1)
Quarter: 2021Q3

REPORT INFORMATION
  Report Type: Spontaneous
  Country: US (occurrence: US)
  Receive Date: 20210715
  Receipt Date: 20210715
  Transmission Date: 20211014
  Serious: No
  Sender: FDA-Public Use
  Company Number: US-PFIZER INC-2021464875

PATIENT
  Age: 66 Year
  Sex: Female

DRUGS (1)
  1. INLYTA [Suspect]
     Active Substance: AXITINIB
     Dosage: 5 MG
     Dates: start: 20210301

REACTIONS (6)
  - Oral pain [Unknown]
  - Malaise [Unknown]
  - Hypertension [Unknown]
  - Diplopia [Unknown]
  - Bone pain [Unknown]
  - Dysphonia [Unknown]

NARRATIVE: CASE EVENT DATE: 2021
